FAERS Safety Report 8106044-0 (Version None)
Quarter: 2012Q1

REPORT INFORMATION
  Report Type: 
  Country: None (occurrence: None)
  Receive Date: 20120202
  Receipt Date: 20120127
  Transmission Date: 20120608
  Serious: No
  Sender: FDA-Public Use
  Company Number: US-BIOGENIDEC-2012BI003485

PATIENT
  Sex: Female

DRUGS (3)
  1. AVONEX [Suspect]
     Indication: MULTIPLE SCLEROSIS
     Route: 030
     Dates: start: 20030613, end: 20081014
  2. AVONEX [Suspect]
     Route: 030
     Dates: start: 20090127
  3. AVONEX [Suspect]
     Route: 030
     Dates: start: 20101217, end: 20110101

REACTIONS (5)
  - TREMOR [None]
  - MOVEMENT DISORDER [None]
  - HYPOAESTHESIA [None]
  - BAND SENSATION [None]
  - MUSCLE SPASTICITY [None]
